FAERS Safety Report 15952802 (Version 1)
Quarter: 2019Q1

REPORT INFORMATION
  Report Type: Spontaneous
  Country: US (occurrence: US)
  Receive Date: 20190212
  Receipt Date: 20190212
  Transmission Date: 20190417
  Serious: Yes (Other)
  Sender: FDA-Public Use
  Company Number: US-PFIZER INC-2019055361

PATIENT
  Age: 64 Year
  Sex: Male
  Weight: 85.73 kg

DRUGS (1)
  1. ZYVOX [Suspect]
     Active Substance: LINEZOLID
     Indication: ABSCESS
     Dosage: 600 MG, 2X/DAY

REACTIONS (4)
  - Pseudomonas infection [Unknown]
  - Product use in unapproved indication [Unknown]
  - Intentional product use issue [Unknown]
  - Bacterial test positive [Unknown]
